FAERS Safety Report 14831877 (Version 1)
Quarter: 2018Q2

REPORT INFORMATION
  Report Type: Spontaneous
  Country: US (occurrence: US)
  Receive Date: 20180410
  Receipt Date: 20180410
  Transmission Date: 20180711
  Serious: Yes (Hospitalization, Disabling, Other)
  Sender: FDA-Public Use
  Company Number: None

PATIENT
  Age: 51 Year
  Sex: Male
  Weight: 111.15 kg

DRUGS (7)
  1. LOSARTAN. [Concomitant]
     Active Substance: LOSARTAN
  2. FLOMAX [Concomitant]
     Active Substance: TAMSULOSIN HYDROCHLORIDE
  3. METOPROLOL. [Concomitant]
     Active Substance: METOPROLOL
  4. IRON [Concomitant]
     Active Substance: IRON
  5. COSENTYX [Suspect]
     Active Substance: SECUKINUMAB
     Indication: PSORIASIS
     Dosage: ?          QUANTITY:2 INJECTION(S);OTHER FREQUENCY:MONTHLY;?
     Route: 058
     Dates: start: 20161001, end: 20180220
  6. DIFLUCAN [Concomitant]
     Active Substance: FLUCONAZOLE
  7. NORCO [Concomitant]
     Active Substance: ACETAMINOPHEN\HYDROCODONE BITARTRATE

REACTIONS (9)
  - Gallbladder disorder [None]
  - Dysuria [None]
  - Heart rate increased [None]
  - Penile pain [None]
  - Bladder pain [None]
  - Pollakiuria [None]
  - Urinary tract discomfort [None]
  - Renal pain [None]
  - Blood urine present [None]

NARRATIVE: CASE EVENT DATE: 20170730
